FAERS Safety Report 4562044-9 (Version None)
Quarter: 2005Q1

REPORT INFORMATION
  Report Type: 
  Country: None (occurrence: None)
  Receive Date: 20050125
  Receipt Date: 20050113
  Transmission Date: 20050727
  Serious: Yes (Hospitalization)
  Sender: FDA-Public Use
  Company Number: 2005014107

PATIENT
  Age: 67 Year
  Sex: Male
  Weight: 95.2554 kg

DRUGS (1)
  1. NASALCROM [Suspect]
     Indication: NASOPHARYNGITIS
     Dosage: NASAL
     Route: 045
     Dates: start: 20041201, end: 20041201

REACTIONS (4)
  - BURNING SENSATION [None]
  - DYSKINESIA [None]
  - NASAL DISCOMFORT [None]
  - NERVOUS SYSTEM DISORDER [None]
